APPROVED DRUG PRODUCT: BENZONATATE
Active Ingredient: BENZONATATE
Strength: 100MG
Dosage Form/Route: CAPSULE;ORAL
Application: A210562 | Product #001
Applicant: CHARTWELL RX SCIENCES LLC
Approved: Nov 9, 2018 | RLD: No | RS: No | Type: DISCN